FAERS Safety Report 5128965-3 (Version None)
Quarter: 2006Q4

REPORT INFORMATION
  Report Type: 
  Country: None (occurrence: None)
  Receive Date: 20061016
  Receipt Date: 20061016
  Transmission Date: 20070319
  Serious: Yes (Hospitalization)
  Sender: FDA-Public Use
  Company Number: None

PATIENT
  Sex: Male
  Weight: 93.441 kg

DRUGS (11)
  1. OXALIPLATIN [Suspect]
     Indication: NEUROENDOCRINE CARCINOMA
     Dosage: 170 MG Q2WEEKS IV
     Route: 042
     Dates: start: 20060712
  2. LEUCOVORIN, 200MG/M2, BEDFORD LABS AND SICOR [Suspect]
     Indication: NEUROENDOCRINE CARCINOMA
     Dosage: 400MG Q2WEEKS IV
     Route: 042
     Dates: start: 20060927
  3. 5-FU, 1200 MG/M2/DAY, SICOR AND APP [Suspect]
     Indication: NEUROENDOCRINE CARCINOMA
     Dosage: 4800 MG Q2WEEKS IV
     Route: 042
     Dates: start: 20060712
  4. BEVACIZUMAB, 5 MG/KG, GENENTECH (BB-IND 12125) [Suspect]
     Indication: NEUROENDOCRINE CARCINOMA
     Dosage: 435 MG QS Q2WEEKS IV
     Route: 042
     Dates: start: 20060927
  5. SANDOSTATIN LAR [Concomitant]
  6. LASIX [Concomitant]
  7. ACYCLOVIR [Concomitant]
  8. SPIRONOLACTONE [Concomitant]
  9. ARANESP [Concomitant]
  10. IMODIUM [Concomitant]
  11. LOMOTIL [Concomitant]

REACTIONS (7)
  - ASCITES [None]
  - CONDITION AGGRAVATED [None]
  - FATIGUE [None]
  - HAEMOGLOBIN DECREASED [None]
  - LABORATORY TEST INTERFERENCE [None]
  - LIVER FUNCTION TEST ABNORMAL [None]
  - PERFORMANCE STATUS DECREASED [None]
